FAERS Safety Report 8360854-3 (Version None)
Quarter: 2012Q2

REPORT INFORMATION
  Report Type: 
  Country: None (occurrence: None)
  Receive Date: 20120515
  Receipt Date: 20120510
  Transmission Date: 20120825
  Serious: Yes (Hospitalization)
  Sender: FDA-Public Use
  Company Number: BR-ABBOTT-12P-020-0921384-00

PATIENT
  Sex: Female
  Weight: 73 kg

DRUGS (5)
  1. HUMIRA [Suspect]
     Dosage: INDUCTION DOSE
     Route: 058
  2. HUMIRA [Suspect]
     Route: 058
     Dates: end: 20120201
  3. MESALAMINE [Concomitant]
     Indication: CROHN'S DISEASE
     Dosage: 800 MG 4 TABLETS PER DAY
     Route: 048
     Dates: start: 20120201
  4. HUMIRA [Suspect]
     Indication: CROHN'S DISEASE
     Dosage: INDUCTION DOSE
     Route: 058
     Dates: start: 20111201, end: 20111201
  5. PREDNISONE TAB [Concomitant]
     Indication: PRODUCT USED FOR UNKNOWN INDICATION
     Dosage: PATIENT WAS DECRASING DOSE.
     Dates: start: 20120101, end: 20120330

REACTIONS (1)
  - DRUG ERUPTION [None]
